FAERS Safety Report 6859321-5 (Version None)
Quarter: 2010Q3

REPORT INFORMATION
  Report Type: 
  Country: None (occurrence: None)
  Receive Date: 20100719
  Receipt Date: 20080227
  Transmission Date: 20110219
  Serious: Yes (Other)
  Sender: FDA-Public Use
  Company Number: US-PFIZER INC-2008019171

PATIENT
  Sex: Male

DRUGS (1)
  1. CHANTIX [Suspect]
     Indication: SMOKING CESSATION THERAPY
     Dates: start: 20080206, end: 20080225

REACTIONS (6)
  - CONSTIPATION [None]
  - DIARRHOEA [None]
  - DRUG DOSE OMISSION [None]
  - FLATULENCE [None]
  - INSOMNIA [None]
  - NAUSEA [None]
